FAERS Safety Report 5163423-1 (Version None)
Quarter: 2006Q4

REPORT INFORMATION
  Report Type: 
  Country: None (occurrence: None)
  Receive Date: 20061204
  Receipt Date: 20061108
  Transmission Date: 20070319
  Serious: Yes (Hospitalization)
  Sender: FDA-Public Use
  Company Number: RO-ROCHE-470545

PATIENT
  Age: 72 Year
  Sex: Female
  Weight: 53 kg

DRUGS (4)
  1. BONIVA [Suspect]
     Indication: OSTEOPOROSIS
     Route: 048
     Dates: start: 20060728, end: 20060728
  2. VERAPAMILUM [Concomitant]
     Route: 048
  3. TANAKAN [Concomitant]
     Route: 048
  4. ALPHA D3 [Concomitant]
     Route: 048

REACTIONS (4)
  - DIZZINESS [None]
  - LACUNAR INFARCTION [None]
  - NAUSEA [None]
  - VOMITING [None]
